FAERS Safety Report 5663783-9 (Version None)
Quarter: 2008Q1

REPORT INFORMATION
  Report Type: 
  Country: None (occurrence: None)
  Receive Date: 20080311
  Receipt Date: 20080222
  Transmission Date: 20080703
  Serious: Yes (Other)
  Sender: FDA-Public Use
  Company Number: 024091

PATIENT
  Age: 16 Year
  Sex: Male

DRUGS (2)
  1. CLARAVIS [Suspect]
     Indication: ACNE CYSTIC
     Dosage: ORAL; 40 MG, QD, ORAL
     Route: 048
     Dates: start: 20070201, end: 20070525
  2. CLARAVIS [Suspect]
     Indication: ACNE CYSTIC
     Dosage: ORAL; 40 MG, QD, ORAL
     Route: 048
     Dates: start: 20071211, end: 20080124

REACTIONS (5)
  - ANGER [None]
  - DEPRESSION [None]
  - JOINT INJURY [None]
  - MOOD ALTERED [None]
  - SPORTS INJURY [None]
